FAERS Safety Report 7562571-6 (Version None)
Quarter: 2011Q2

REPORT INFORMATION
  Report Type: 
  Country: None (occurrence: None)
  Receive Date: 20110614
  Receipt Date: 20110606
  Transmission Date: 20111010
  Serious: Yes (Hospitalization)
  Sender: FDA-Public Use
  Company Number: TPA2011A02924

PATIENT
  Age: 6 Decade
  Sex: Female

DRUGS (2)
  1. HYDROCHLOROTHIAZIDE (HCTZ) (HYDROCHLOROTHIAZIDE) [Concomitant]
  2. EDARBI [Suspect]
     Indication: HYPERTENSION
     Dosage: 80 MG, 1 IN 1 D, PER ORAL
     Route: 048
     Dates: start: 20110527, end: 20110603

REACTIONS (2)
  - HYPOTENSION [None]
  - CARDIOMYOPATHY [None]
